FAERS Safety Report 17100526 (Version 2)
Quarter: 2020Q1

REPORT INFORMATION
  Report Type: Report from Study
  Country: US (occurrence: US)
  Receive Date: 20191202
  Receipt Date: 20200117
  Transmission Date: 20200409
  Serious: No
  Sender: FDA-Public Use
  Company Number: NVSC2019US054893

PATIENT
  Sex: Female

DRUGS (1)
  1. COSENTYX [Suspect]
     Active Substance: SECUKINUMAB
     Indication: ANKYLOSING SPONDYLITIS
     Dosage: UNK
     Route: 065

REACTIONS (7)
  - Pharyngeal exudate [Unknown]
  - Upper-airway cough syndrome [Unknown]
  - Peripheral swelling [Unknown]
  - Lethargy [Unknown]
  - Fatigue [Unknown]
  - Back pain [Unknown]
  - Pain [Not Recovered/Not Resolved]
